FAERS Safety Report 6042168-X (Version None)
Quarter: 2009Q1

REPORT INFORMATION
  Report Type: 
  Country: None (occurrence: None)
  Receive Date: 20090116
  Receipt Date: 20090106
  Transmission Date: 20090719
  Serious: Yes (Other)
  Sender: FDA-Public Use
  Company Number: PHHY2009IE01064

PATIENT
  Sex: Female

DRUGS (2)
  1. CLOZARIL [Suspect]
     Indication: SCHIZOPHRENIA
     Dosage: UNK
     Dates: start: 20060216
  2. CHLORPHENIRAMINE MALEATE [Concomitant]
     Dosage: UNK

REACTIONS (2)
  - CELLULITIS [None]
  - SOMNOLENCE [None]
